FAERS Safety Report 8379043-1 (Version None)
Quarter: 2012Q2

REPORT INFORMATION
  Report Type: 
  Country: None (occurrence: None)
  Receive Date: 20120522
  Receipt Date: 20120522
  Transmission Date: 20120825
  Serious: Yes (Other)
  Sender: FDA-Public Use
  Company Number: None

PATIENT
  Age: 52 Year
  Sex: Female
  Weight: 107.0489 kg

DRUGS (1)
  1. HYZAAR [Suspect]
     Indication: HYPERTENSION
     Dosage: 50 . 12.5 ONCE A DAY ORAL
     Route: 048
     Dates: start: 20120201, end: 20120401

REACTIONS (2)
  - VITREOUS FLOATERS [None]
  - VISUAL ACUITY REDUCED [None]
